FAERS Safety Report 11704563 (Version 2)
Quarter: 2015Q4

REPORT INFORMATION
  Report Type: Spontaneous
  Country: GB (occurrence: GB)
  Receive Date: 20151106
  Receipt Date: 20151204
  Transmission Date: 20160304
  Serious: Yes (Other)
  Sender: FDA-Public Use
  Company Number: GB-SA-2015SA175099

PATIENT
  Sex: Female

DRUGS (1)
  1. FABRAZYME [Suspect]
     Active Substance: AGALSIDASE BETA
     Route: 041

REACTIONS (6)
  - Palpitations [Unknown]
  - Heart rate decreased [Unknown]
  - Dyspnoea [Unknown]
  - Anxiety [Unknown]
  - Cardiac disorder [Unknown]
  - Tearfulness [Unknown]

NARRATIVE: CASE EVENT DATE: 20151126
